FAERS Safety Report 13058142 (Version 1)
Quarter: 2016Q4

REPORT INFORMATION
  Report Type: Spontaneous
  Country: US (occurrence: US)
  Receive Date: 20161223
  Receipt Date: 20161223
  Transmission Date: 20170207
  Serious: Yes (Other)
  Sender: FDA-Public Use
  Company Number: US-ROCHE-1869151

PATIENT
  Age: 66 Year
  Sex: Female

DRUGS (3)
  1. GAZYVA [Suspect]
     Active Substance: OBINUTUZUMAB
     Indication: B-CELL LYMPHOMA RECURRENT
     Dosage: ONGOING;NO
     Route: 042
     Dates: start: 20161215, end: 20161215
  2. DECADRON [Concomitant]
     Active Substance: DEXAMETHASONE
     Dosage: ONGOING;NO
     Route: 065
     Dates: start: 20161215, end: 20161215
  3. BENDAMUSTINE [Concomitant]
     Active Substance: BENDAMUSTINE
     Dosage: ONGOING;NO
     Route: 065
     Dates: start: 20161215, end: 20161215

REACTIONS (3)
  - Inappropriate schedule of drug administration [Unknown]
  - Nausea [Recovered/Resolved]
  - Blood pressure decreased [Recovered/Resolved]

NARRATIVE: CASE EVENT DATE: 20161215
